FAERS Safety Report 5300060-X (Version None)
Quarter: 2007Q2

REPORT INFORMATION
  Report Type: 
  Country: None (occurrence: None)
  Receive Date: 20070410
  Receipt Date: 20070328
  Transmission Date: 20071010
  Serious: Yes (Hospitalization)
  Sender: FDA-Public Use
  Company Number: B0458302A

PATIENT
  Age: 75 Year
  Sex: Female
  Weight: 62.8685 kg

DRUGS (4)
  1. REQUIP TABLET-EXTENDED RELEASE (ROPINIROLE HCL) [Suspect]
     Indication: PARKINSON'S DISEASE
     Dosage: ORAL
     Route: 048
     Dates: start: 20070125, end: 20070205
  2. FELODIPINE [Concomitant]
  3. VASERETIC [Concomitant]
  4. REPAGLINIDE [Concomitant]

REACTIONS (7)
  - ASTHENIA [None]
  - COORDINATION ABNORMAL [None]
  - DROP ATTACKS [None]
  - HYPOAESTHESIA [None]
  - TRANSIENT ISCHAEMIC ATTACK [None]
  - VERTEBRAL ARTERY OCCLUSION [None]
  - VERTIGO [None]
